FAERS Safety Report 5166702-7 (Version None)
Quarter: 2006Q4

REPORT INFORMATION
  Report Type: 
  Country: None (occurrence: None)
  Receive Date: 20061207
  Receipt Date: 20061128
  Transmission Date: 20070319
  Serious: Yes (Other)
  Sender: FDA-Public Use
  Company Number: PHEH2006US14673

PATIENT

DRUGS (1)
  1. ELIDEL [Suspect]

REACTIONS (1)
  - HODGKIN'S DISEASE [None]
